FAERS Safety Report 8408517 (Version 2)
Quarter: 2013Q4

REPORT INFORMATION
  Report Type: Spontaneous
  Country: US (occurrence: US)
  Receive Date: 20120216
  Receipt Date: 20131226
  Transmission Date: 20140711
  Serious: Yes (Hospitalization, Other)
  Sender: FDA-Public Use
  Company Number: US-BAYER-2012-014315

PATIENT
  Age: 37 Year
  Sex: Female

DRUGS (2)
  1. YASMIN [Suspect]
     Dosage: UNK
     Dates: start: 2004, end: 2009
  2. OCELLA [Suspect]
     Dosage: UNK
     Dates: start: 2004, end: 2009

REACTIONS (6)
  - Gallbladder disorder [None]
  - Cholecystitis acute [None]
  - Pain [None]
  - Anxiety [None]
  - Anhedonia [None]
  - Injury [None]
